FAERS Safety Report 10190967 (Version 1)
Quarter: 2014Q2

REPORT INFORMATION
  Report Type: Spontaneous
  Country: US (occurrence: US)
  Receive Date: 20140523
  Receipt Date: 20140523
  Transmission Date: 20141212
  Serious: No
  Sender: FDA-Public Use
  Company Number: US-TEVA-483191USA

PATIENT
  Age: 84 Year
  Sex: Female
  Weight: 63.56 kg

DRUGS (5)
  1. PROAIR HFA [Suspect]
     Indication: BRONCHITIS
     Route: 055
     Dates: start: 20140414, end: 20140516
  2. LOSARTAN [Concomitant]
     Indication: CARDIAC DISORDER
  3. LORATADINE [Concomitant]
     Indication: HYPERSENSITIVITY
  4. PROTONIX [Concomitant]
     Indication: GASTRIC ULCER
  5. FLUNISOLIDE [Concomitant]
     Indication: HYPERSENSITIVITY
     Route: 045

REACTIONS (2)
  - Rash erythematous [Recovered/Resolved]
  - Pruritus [Recovered/Resolved]
